FAERS Safety Report 13132365 (Version 2)
Quarter: 2017Q1

REPORT INFORMATION
  Report Type: Report from Study
  Country: NL (occurrence: NL)
  Receive Date: 20170120
  Receipt Date: 20170123
  Transmission Date: 20170428
  Serious: Yes (Hospitalization)
  Sender: FDA-Public Use
  Company Number: US-ASTRAZENECA-2016SF35817

PATIENT
  Age: 87 Day
  Sex: Male
  Weight: 2.4 kg

DRUGS (4)
  1. SYNAGIS [Suspect]
     Active Substance: PALIVIZUMAB
     Indication: ANTIVIRAL PROPHYLAXIS
     Route: 030
  2. SYNAGIS [Suspect]
     Active Substance: PALIVIZUMAB
     Indication: ANTIVIRAL PROPHYLAXIS
     Route: 030
     Dates: start: 20161201, end: 20161201
  3. VITAMIN D [Concomitant]
     Active Substance: CHOLECALCIFEROL
     Indication: PRODUCT USED FOR UNKNOWN INDICATION
  4. SYNAGIS [Suspect]
     Active Substance: PALIVIZUMAB
     Indication: ANTIVIRAL PROPHYLAXIS
     Route: 030
     Dates: start: 20161103, end: 20161103

REACTIONS (2)
  - Respiratory syncytial virus infection [Recovered/Resolved]
  - Rhinovirus infection [Recovered/Resolved]

NARRATIVE: CASE EVENT DATE: 20161210
